FAERS Safety Report 7141913-X (Version None)
Quarter: 2010Q4

REPORT INFORMATION
  Report Type: 
  Country: None (occurrence: None)
  Receive Date: 20101207
  Receipt Date: 20101201
  Transmission Date: 20110411
  Serious: Yes (Other)
  Sender: FDA-Public Use
  Company Number: KR-BAXTER-2010BH029164

PATIENT
  Age: 1 Month
  Sex: Male
  Weight: 4 kg

DRUGS (7)
  1. SEVOFLURANE [Suspect]
     Indication: INGUINAL HERNIA REPAIR
     Route: 055
  2. KETAMINE [Concomitant]
     Indication: INDUCTION OF ANAESTHESIA
     Route: 042
  3. GLYCOPYRROLATE [Concomitant]
     Indication: INDUCTION OF ANAESTHESIA
     Route: 042
  4. ENFLURANE [Concomitant]
     Indication: ANAESTHESIA
     Route: 055
  5. OXYGEN [Concomitant]
     Indication: ANAESTHESIA
     Route: 055
  6. ATRACURIUM [Concomitant]
     Indication: PRODUCT USED FOR UNKNOWN INDICATION
     Route: 065
  7. NITROUS OXIDE [Concomitant]
     Indication: MAINTENANCE OF ANAESTHESIA
     Route: 055

REACTIONS (2)
  - DEVICE MALFUNCTION [None]
  - OXYGEN SATURATION DECREASED [None]
